FAERS Safety Report 10620237 (Version 1)
Quarter: 2014Q4

REPORT INFORMATION
  Report Type: Spontaneous
  Country: ZA (occurrence: None)
  Receive Date: 20141128
  Receipt Date: 20141128
  Transmission Date: 20150529
  Serious: Yes (Other)
  Sender: FDA-Public Use
  Company Number: ADR-2014-02237

PATIENT
  Sex: Male

DRUGS (1)
  1. LIORESAL [Suspect]
     Active Substance: BACLOFEN
     Indication: NEURALGIA
     Dates: start: 2001

REACTIONS (6)
  - Pain [None]
  - Dry mouth [None]
  - Vision blurred [None]
  - Seizure [None]
  - Palpitations [None]
  - Drug withdrawal syndrome [None]
